FAERS Safety Report 22348821 (Version 1)
Quarter: 2023Q2

REPORT INFORMATION
  Report Type: Spontaneous
  Country: CN (occurrence: None)
  Receive Date: 20230522
  Receipt Date: 20230522
  Transmission Date: 20230722
  Serious: Yes (Other)
  Sender: FDA-Public Use
  Company Number: CN-ROCHE-3351035

PATIENT

DRUGS (2)
  1. BEVACIZUMAB [Suspect]
     Active Substance: BEVACIZUMAB
     Indication: Colorectal cancer metastatic
     Route: 065
  2. TIPIRACIL HYDROCHLORIDE\TRIFLURIDINE [Concomitant]
     Active Substance: TIPIRACIL HYDROCHLORIDE\TRIFLURIDINE
     Indication: Colorectal cancer metastatic
     Route: 065

REACTIONS (14)
  - Neutropenia [Unknown]
  - Nausea [Unknown]
  - Anaemia [Unknown]
  - Asthenia [Unknown]
  - Fatigue [Unknown]
  - Diarrhoea [Unknown]
  - Decreased appetite [Unknown]
  - Vomiting [Unknown]
  - Thrombocytopenia [Unknown]
  - Neutrophil count decreased [Unknown]
  - Abdominal pain [Unknown]
  - Stomatitis [Unknown]
  - Hypertension [Unknown]
  - Constipation [Unknown]
